FAERS Safety Report 21399785 (Version 1)
Quarter: 2022Q4

REPORT INFORMATION
  Report Type: Spontaneous
  Country: US (occurrence: US)
  Receive Date: 20221001
  Receipt Date: 20221001
  Transmission Date: 20230112
  Serious: No
  Sender: FDA-Public Use
  Company Number: US-JNJFOC-20220944607

PATIENT
  Sex: Male

DRUGS (1)
  1. IMODIUM A-D [Suspect]
     Active Substance: LOPERAMIDE HYDROCHLORIDE
     Indication: Diarrhoea
     Dosage: 1 PILL?BEEN AN IMODIUM CUSTOMER FOR 25 YEARS AND BOUGHT SOME MORE THIS WEEK
     Route: 065

REACTIONS (3)
  - Drug ineffective [Unknown]
  - Product packaging difficult to open [Unknown]
  - Incorrect dose administered [Unknown]
